FAERS Safety Report 4832722-2 (Version None)
Quarter: 2005Q4

REPORT INFORMATION
  Report Type: 
  Country: None (occurrence: None)
  Receive Date: 20051117
  Receipt Date: 20051102
  Transmission Date: 20060501
  Serious: Yes (Other)
  Sender: FDA-Public Use
  Company Number: DPC-2005-00093

PATIENT
  Age: 65 Year
  Sex: Female

DRUGS (4)
  1. EVOXAC [Suspect]
     Indication: DRY MOUTH
     Dosage: 30 MG (TID), PER ORAL
     Route: 048
     Dates: start: 20050623
  2. EVOXAC [Suspect]
     Indication: SJOGREN'S SYNDROME
     Dosage: 30 MG (TID), PER ORAL
     Route: 048
     Dates: start: 20050623
  3. DEPAKOTE [Concomitant]
  4. ATIVAN [Concomitant]

REACTIONS (5)
  - COMPLEX PARTIAL SEIZURES [None]
  - HALLUCINATION, AUDITORY [None]
  - IMPAIRED DRIVING ABILITY [None]
  - STOMATITIS [None]
  - TOOTH DISORDER [None]
